FAERS Safety Report 10365202 (Version 1)
Quarter: 2014Q3

REPORT INFORMATION
  Report Type: Spontaneous
  Country: US (occurrence: None)
  Receive Date: 20140805
  Receipt Date: 20140805
  Transmission Date: 20150326
  Serious: No
  Sender: FDA-Public Use
  Company Number: None

PATIENT
  Age: 47 Year
  Sex: Female

DRUGS (1)
  1. VIVELLE DOT [Suspect]
     Active Substance: ESTRADIOL
     Dosage: 0.075 MG TRANSDERMAL

REACTIONS (6)
  - Suicidal ideation [None]
  - Crying [None]
  - Product adhesion issue [None]
  - Drug ineffective [None]
  - Hot flush [None]
  - Product quality issue [None]

NARRATIVE: CASE EVENT DATE: 20140607
